FAERS Safety Report 8493245-5 (Version None)
Quarter: 2012Q3

REPORT INFORMATION
  Report Type: 
  Country: None (occurrence: None)
  Receive Date: 20120706
  Receipt Date: 20120628
  Transmission Date: 20120928
  Serious: Yes (Other)
  Sender: FDA-Public Use
  Company Number: GB-JNJFOC-20120701036

PATIENT
  Age: 65 Year
  Sex: Male

DRUGS (3)
  1. GABAPENTIN [Suspect]
     Indication: BACK PAIN
     Dosage: ONCE A DAY
     Route: 048
  2. FENTANYL-100 [Suspect]
     Indication: PRODUCT USED FOR UNKNOWN INDICATION
     Route: 062
     Dates: start: 20120607, end: 20120607
  3. TRAMADOL HCL [Suspect]
     Indication: BACK PAIN
     Dosage: ONCE A DAY
     Route: 048

REACTIONS (6)
  - DYSPNOEA [None]
  - CHEST PAIN [None]
  - SWEAT GLAND DISORDER [None]
  - TOXICITY TO VARIOUS AGENTS [None]
  - FEELING ABNORMAL [None]
  - INSOMNIA [None]
